FAERS Safety Report 4264609-0 (Version None)
Quarter: 2004Q1

REPORT INFORMATION
  Report Type: 
  Country: None (occurrence: None)
  Receive Date: 20040106
  Receipt Date: 20031226
  Transmission Date: 20041129
  Serious: Yes (Other)
  Sender: FDA-Public Use
  Company Number: JP-ROCHE-354849

PATIENT
  Sex: Female

DRUGS (4)
  1. TAMIFLU [Suspect]
     Route: 048
  2. MEIACT [Concomitant]
  3. SHO-SAIKO-TO [Concomitant]
  4. FLU VACCINE [Concomitant]

REACTIONS (1)
  - PULMONARY FIBROSIS [None]
